FAERS Safety Report 8522762-4 (Version None)
Quarter: 2012Q3

REPORT INFORMATION
  Report Type: 
  Country: None (occurrence: None)
  Receive Date: 20120719
  Receipt Date: 20120712
  Transmission Date: 20120928
  Serious: No
  Sender: FDA-Public Use
  Company Number: US-B.I. PHARMACEUTICALS,INC./RIDGEFIELD-2012-BP-15576BP

PATIENT
  Age: 71 Year
  Sex: Female

DRUGS (4)
  1. OXYGEN [Concomitant]
     Indication: CHRONIC OBSTRUCTIVE PULMONARY DISEASE
     Dates: start: 20100101
  2. PROPYLENE GLYCOL [Concomitant]
     Indication: EYE LUBRICATION THERAPY
  3. SPIRIVA [Suspect]
     Indication: CHRONIC OBSTRUCTIVE PULMONARY DISEASE
     Dosage: 18 MCG
     Route: 055
     Dates: start: 20100701
  4. MEDICATION NOT FURTHER SPECIFIED [Concomitant]

REACTIONS (3)
  - EYE PRURITUS [None]
  - EPISTAXIS [None]
  - VISION BLURRED [None]
